FAERS Safety Report 9313386 (Version 5)
Quarter: 2013Q3

REPORT INFORMATION
  Report Type: Spontaneous
  Country: FR (occurrence: FR)
  Receive Date: 20130528
  Receipt Date: 20130906
  Transmission Date: 20140515
  Serious: Yes (Death, Hospitalization)
  Sender: FDA-Public Use
  Company Number: PHHY2013FR052887

PATIENT
  Age: 72 Year
  Sex: Female

DRUGS (19)
  1. CIPROFLOXACIN SANDOZ [Suspect]
     Indication: INFECTIVE EXACERBATION OF BRONCHIECTASIS
     Dosage: 750 MG, BID
     Route: 048
     Dates: start: 20130201, end: 20130201
  2. BRONCHODUAL [Concomitant]
     Dosage: 1 DF, TID
     Dates: start: 20130114
  3. AUGMENTINE [Concomitant]
  4. CORTICOSTEROID NOS [Concomitant]
     Dosage: UNK UKN, UNK
     Route: 048
  5. CORTICOSTEROID NOS [Concomitant]
     Dosage: UNK UKN, UNK
     Route: 051
  6. ATROVENT [Concomitant]
  7. BRICANYL [Concomitant]
  8. CIPROFLOXACINE MYLAN [Concomitant]
     Dosage: 3 DF, DAILY
     Route: 048
     Dates: start: 20130123
  9. DILATRANE [Concomitant]
     Dosage: 200 MG, IN THE EVENING
     Route: 048
     Dates: start: 20130129
  10. DILATRANE [Concomitant]
     Dosage: 300 MG, IN THE EVENING
     Route: 048
     Dates: start: 20130129
  11. FORLAX [Concomitant]
     Dosage: 2 DF, AT NOON
     Route: 048
     Dates: start: 20130114
  12. GAVISCON [Concomitant]
     Dosage: 1 DF, TID
     Route: 048
     Dates: start: 20130117
  13. LEXOMIL [Concomitant]
     Dosage: 0.5 DF, IN THE EVENING
     Route: 048
     Dates: start: 20130129
  14. METEOSPASMYL [Concomitant]
     Dosage: 1 DF, TID
     Route: 048
     Dates: start: 20130110
  15. PARIET [Concomitant]
     Dosage: 2 DF, IN THE EVENING
     Route: 048
     Dates: start: 20130116
  16. VFEND [Concomitant]
     Dosage: 1 DF, BID
     Route: 048
     Dates: start: 20130124
  17. FRAGMINE [Concomitant]
     Dosage: 1 DF, IN THE EVENING
     Dates: start: 20130110
  18. IPRATROPIUM ARROW [Concomitant]
     Dosage: 1 DF, TID
     Dates: start: 20130124
  19. TERBUTALINE ARROW [Concomitant]
     Dosage: 1 DF, TID
     Dates: start: 20130124

REACTIONS (12)
  - Respiratory failure [Fatal]
  - Acidosis hyperchloraemic [Fatal]
  - Coma [Fatal]
  - Vision blurred [Unknown]
  - Hypoxic-ischaemic encephalopathy [Unknown]
  - Loss of consciousness [Unknown]
  - Asterixis [Unknown]
  - Oedema peripheral [Unknown]
  - Dyspnoea [Unknown]
  - Anaemia [Unknown]
  - Diarrhoea [Unknown]
  - Localised oedema [Unknown]
